FAERS Safety Report 19810215 (Version 3)
Quarter: 2022Q3

REPORT INFORMATION
  Report Type: Spontaneous
  Country: GB (occurrence: GB)
  Receive Date: 20210909
  Receipt Date: 20220811
  Transmission Date: 20221027
  Serious: Yes (Hospitalization)
  Sender: FDA-Public Use
  Company Number: GB-MYLANLABS-2021M1059067

PATIENT
  Age: 49 Year
  Sex: Male
  Weight: 139.8 kg

DRUGS (1)
  1. CLOZARIL [Suspect]
     Active Substance: CLOZAPINE
     Indication: Schizophrenia
     Dosage: 450 MILLIGRAM, QD
     Route: 048
     Dates: start: 20090818, end: 20210829

REACTIONS (3)
  - Mental impairment [Recovering/Resolving]
  - Treatment noncompliance [Recovering/Resolving]
  - Overdose [Recovering/Resolving]
